FAERS Safety Report 19370065 (Version 4)
Quarter: 2022Q1

REPORT INFORMATION
  Report Type: Report from Study
  Country: TR (occurrence: TR)
  Receive Date: 20210604
  Receipt Date: 20220111
  Transmission Date: 20220424
  Serious: Yes (Other)
  Sender: FDA-Public Use
  Company Number: TR-ABBVIE-21K-161-3891780-00

PATIENT
  Age: 53 Year
  Sex: Male
  Weight: 72 kg

DRUGS (2)
  1. CARBIDOPA\LEVODOPA [Suspect]
     Active Substance: CARBIDOPA\LEVODOPA
     Indication: Parkinson^s disease
     Dosage: MORNING DOSE (ML): 10.00 CONTINUOUS DOSE (ML): 4.30 EXTRA DOSE (ML): 2.00
     Route: 050
     Dates: start: 20151222, end: 20211005
  2. CARBIDOPA\LEVODOPA [Suspect]
     Active Substance: CARBIDOPA\LEVODOPA
     Dosage: MORNING DOSE (ML): 10.00 CONTINUOUS DOSE (ML): 4.30 EXTRA DOSE (ML): 2.00
     Route: 050
     Dates: start: 20211230

REACTIONS (11)
  - Duodenal perforation [Not Recovered/Not Resolved]
  - Intestinal perforation [Not Recovered/Not Resolved]
  - Gastrointestinal wall thickening [Not Recovered/Not Resolved]
  - Product use issue [Recovered/Resolved]
  - Device occlusion [Recovered/Resolved]
  - Abdominal pain upper [Not Recovered/Not Resolved]
  - Stoma site haemorrhage [Recovered/Resolved]
  - Abdominal distension [Not Recovered/Not Resolved]
  - Constipation [Recovered/Resolved]
  - Ileus [Recovered/Resolved]
  - Stoma site infection [Not Recovered/Not Resolved]

NARRATIVE: CASE EVENT DATE: 20210502
